FAERS Safety Report 4309762-5 (Version None)
Quarter: 2004Q1

REPORT INFORMATION
  Report Type: 
  Country: None (occurrence: None)
  Receive Date: 20040301
  Receipt Date: 20040216
  Transmission Date: 20041129
  Serious: Yes (Other)
  Sender: FDA-Public Use
  Company Number: 2004001002

PATIENT
  Sex: Female
  Weight: 66.6788 kg

DRUGS (1)
  1. DILANTIN KAPSEAL [Suspect]
     Indication: CONVULSION
     Dosage: 300 MG (DAILY), ORAL
     Route: 048
     Dates: start: 19890101, end: 20030101

REACTIONS (2)
  - CONVULSION [None]
  - NEUROPATHY PERIPHERAL [None]
